FAERS Safety Report 24786662 (Version 1)
Quarter: 2024Q4

REPORT INFORMATION
  Report Type: Spontaneous
  Country: US (occurrence: US)
  Receive Date: 20241230
  Receipt Date: 20241230
  Transmission Date: 20250115
  Serious: Yes (Hospitalization, Other)
  Sender: ABBVIE
  Company Number: CA-ABBVIE-6062341

PATIENT
  Age: 9 Year
  Sex: Female
  Weight: 20.9 kg

DRUGS (4)
  1. MESALAMINE [Suspect]
     Active Substance: MESALAMINE
     Indication: Product used for unknown indication
     Route: 065
  2. INFLECTRA [Suspect]
     Active Substance: INFLIXIMAB-DYYB
     Indication: Colitis ulcerative
     Dosage: LAST ADMIN DATE:2023  RATIO OF 14.35 MG/KG ?4 WEEKS FOR 12 MONTHS REPEAT TWO TIMES
     Route: 042
     Dates: start: 20230408
  3. INFLECTRA [Suspect]
     Active Substance: INFLIXIMAB-DYYB
     Indication: Colitis ulcerative
     Dosage: RATIO OF 14.35 MG/KG
     Route: 042
     Dates: start: 20231109
  4. HYDROCORTISONE [Concomitant]
     Active Substance: HYDROCORTISONE
     Indication: Product used for unknown indication
     Dates: start: 20230408

REACTIONS (9)
  - Pyrexia [Unknown]
  - Blood pressure decreased [Not Recovered/Not Resolved]
  - Hypothermia [Unknown]
  - Melaena [Unknown]
  - Haematochezia [Unknown]
  - Upper respiratory tract infection [Unknown]
  - Viral infection [Not Recovered/Not Resolved]
  - Off label use [Unknown]
  - Therapeutic product effect incomplete [Unknown]

NARRATIVE: CASE EVENT DATE: 20230101
